FAERS Safety Report 5769192-6 (Version None)
Quarter: 2008Q2

REPORT INFORMATION
  Report Type: 
  Country: None (occurrence: None)
  Receive Date: 20080612
  Receipt Date: 20080325
  Transmission Date: 20081010
  Serious: No
  Sender: FDA-Public Use
  Company Number: US-ABBOTT-08P-163-0444070-00

PATIENT
  Sex: Male
  Weight: 95.34 kg

DRUGS (3)
  1. HUMIRA [Suspect]
     Indication: CROHN'S DISEASE
     Route: 058
     Dates: start: 20070601
  2. PENTAZA [Concomitant]
     Indication: CROHN'S DISEASE
     Route: 048
  3. PRINZIDE [Concomitant]
     Indication: HYPERTENSION
     Route: 048

REACTIONS (4)
  - ARTHRALGIA [None]
  - NECK PAIN [None]
  - PAIN [None]
  - WEIGHT INCREASED [None]
